FAERS Safety Report 5710173-6 (Version None)
Quarter: 2008Q2

REPORT INFORMATION
  Report Type: 
  Country: None (occurrence: None)
  Receive Date: 20080418
  Receipt Date: 20080118
  Transmission Date: 20081010
  Serious: No
  Sender: FDA-Public Use
  Company Number: US-ASTRAZENECA-2008UW00490

PATIENT
  Sex: Male
  Weight: 79.4 kg

DRUGS (3)
  1. METOPROLOL SUCCINATE [Suspect]
     Indication: HYPERTENSION
     Route: 048
     Dates: start: 20030101
  2. LIPITOR [Concomitant]
  3. VITAMINS [Concomitant]

REACTIONS (2)
  - FEELING OF BODY TEMPERATURE CHANGE [None]
  - PALPITATIONS [None]
